FAERS Safety Report 7826870-2 (Version None)
Quarter: 2011Q4

REPORT INFORMATION
  Report Type: 
  Country: None (occurrence: None)
  Receive Date: 20111020
  Receipt Date: 20111018
  Transmission Date: 20120403
  Serious: No
  Sender: FDA-Public Use
  Company Number: US-B.I. PHARMACEUTICALS,INC./RIDGEFIELD-2011-BP-19699BP

PATIENT
  Age: 79 Year
  Sex: Male
  Weight: 83.91 kg

DRUGS (9)
  1. COLACE [Concomitant]
  2. ZYRTEC [Concomitant]
  3. COREG [Concomitant]
     Indication: ATRIAL FIBRILLATION
     Dosage: 6.25 MG
     Route: 048
  4. PRAVACHOL [Concomitant]
  5. PRAVASTATIN [Concomitant]
     Indication: BLOOD CHOLESTEROL INCREASED
     Dosage: 80 MG
     Route: 048
  6. DULCOLAX (DOCUSATE SODIUM) [Concomitant]
     Indication: FAECES HARD
     Dosage: 100 MG
     Route: 048
  7. FLOMAX (GENERIC) [Concomitant]
     Indication: PROSTATITIS
     Dosage: 0.4 MG
     Route: 048
  8. PRADAXA [Suspect]
     Indication: ATRIAL FIBRILLATION
     Dosage: 300 MG
     Route: 048
     Dates: start: 20110610
  9. ASTEPRO [Concomitant]

REACTIONS (2)
  - HYPOGEUSIA [None]
  - DYSGEUSIA [None]
